FAERS Safety Report 14067036 (Version 1)
Quarter: 2017Q4

REPORT INFORMATION
  Report Type: Spontaneous
  Country: US (occurrence: US)
  Receive Date: 20171010
  Receipt Date: 20171010
  Transmission Date: 20180321
  Serious: No
  Sender: FDA-Public Use
  Company Number: US-BRISTOL-MYERS SQUIBB COMPANY-BMS-2017-090021

PATIENT
  Sex: Female
  Weight: 95.25 kg

DRUGS (1)
  1. ELIQUIS [Suspect]
     Active Substance: APIXABAN
     Indication: PULMONARY EMBOLISM
     Dosage: 5 MG, BID
     Route: 048

REACTIONS (5)
  - Nasopharyngitis [Unknown]
  - Chronic sinusitis [Unknown]
  - Cough [Unknown]
  - Hypersomnia [Unknown]
  - Fatigue [Unknown]
